FAERS Safety Report 13917513 (Version 1)
Quarter: 2017Q3

REPORT INFORMATION
  Report Type: Spontaneous
  Country: BR (occurrence: BR)
  Receive Date: 20170829
  Receipt Date: 20170829
  Transmission Date: 20171127
  Serious: Yes (Other)
  Sender: FDA-Public Use
  Company Number: BR-PFIZER INC-2017354456

PATIENT
  Age: 63 Year
  Sex: Female
  Weight: 80 kg

DRUGS (7)
  1. ALMEIDA PRADO 46 [Concomitant]
     Indication: CONSTIPATION
     Dosage: UNK
     Dates: start: 2013
  2. RIFAMPICIN AND ISONIZID [Concomitant]
     Indication: TUBERCULOSIS
     Dosage: UNK
     Dates: start: 201702
  3. PRISTIQ EXTENDED-RELEASE [Suspect]
     Active Substance: DESVENLAFAXINE SUCCINATE
     Indication: DEPRESSION
     Dosage: 2 TABLETS OF 50MG DAILY
     Route: 048
     Dates: start: 20170710
  4. GLIFAGE [Concomitant]
     Active Substance: METFORMIN HYDROCHLORIDE
     Indication: BLOOD TRIGLYCERIDES INCREASED
     Dosage: UNK
  5. PRESSAT [Concomitant]
     Active Substance: AMLODIPINE BESYLATE
     Indication: HYPERTENSION
     Dosage: UNK
     Dates: start: 2013
  6. ADIPEPT [Concomitant]
     Indication: GASTRIC DISORDER
     Dosage: UNK
     Dates: start: 2013
  7. RIVOTRIL [Concomitant]
     Active Substance: CLONAZEPAM
     Dosage: TWICE DAILY WITH DOSE TOTAL OF 3MG
     Dates: start: 20170710

REACTIONS (4)
  - Drug ineffective [Not Recovered/Not Resolved]
  - Medication residue present [Not Recovered/Not Resolved]
  - Diarrhoea [Not Recovered/Not Resolved]
  - Crying [Not Recovered/Not Resolved]

NARRATIVE: CASE EVENT DATE: 2017
